FAERS Safety Report 22189580 (Version 5)
Quarter: 2024Q4

REPORT INFORMATION
  Report Type: Spontaneous
  Country: BR (occurrence: BR)
  Receive Date: 20230410
  Receipt Date: 20241009
  Transmission Date: 20250114
  Serious: Yes (Other)
  Sender: CELLTRION
  Company Number: BR-CELLTRION INC.-2023BR002708

PATIENT

DRUGS (10)
  1. INFLIXIMAB [Suspect]
     Active Substance: INFLIXIMAB
     Indication: Crohn^s disease
     Dosage: 4 AMPOULES EVERY 2 MONTHS (STARTED 4 MONTHS AGO)
     Route: 042
  2. INFLIXIMAB [Suspect]
     Active Substance: INFLIXIMAB
     Dosage: 4 AMPOULES OF 100 MG EACH (400 MG TOTAL) EVERY 2 MONTHS
     Route: 042
     Dates: end: 20240616
  3. INFLIXIMAB [Suspect]
     Active Substance: INFLIXIMAB
     Dosage: 4 AMPOULES OF 100 MG (400 MG TOTAL) EVERY 2 MONTHS
     Route: 042
     Dates: end: 20240816
  4. TIBOLONE [Concomitant]
     Active Substance: TIBOLONE
     Dosage: 2.5 MG, 1 PILL PER DAY
     Route: 048
     Dates: start: 2013
  5. DEPAKOTE ER [Concomitant]
     Active Substance: DIVALPROEX SODIUM
     Indication: Depression
     Dosage: 500 MG, 1 PILL PER DAY
     Route: 048
     Dates: start: 2013
  6. ZOLPIDEM [Concomitant]
     Active Substance: ZOLPIDEM TARTRATE
     Indication: Insomnia
     Dosage: 0.5 MG, 2 PILLS PER DAY (6 YEARS AGO)
     Route: 048
  7. PRAMIPEXOLE [Concomitant]
     Active Substance: PRAMIPEXOLE\PRAMIPEXOLE DIHYDROCHLORIDE
     Indication: Parkinsonism
     Dosage: 0.75 MG, 1 PILL PER DAY (19 YEARS AGO)
     Route: 048
  8. BUPROPION HYDROCHLORIDE [Concomitant]
     Active Substance: BUPROPION HYDROCHLORIDE
     Indication: Depression
     Dosage: 150 MILLIGRAM, (1 PILL PER DAY, 3 MONTHS AGO)
     Route: 048
  9. STABIL [PROCHLORPERAZINE MALEATE] [Concomitant]
     Indication: Parkinson^s disease
     Dosage: 1 G TABLET AT NIGHT AND 0.375 TABLET IN THE MORNING
     Route: 048
  10. PIEMONTE [MONTELUKAST] [Concomitant]
     Indication: Respiratory tract haemorrhage
     Dosage: 1 TABLET A DAY
     Route: 048

REACTIONS (13)
  - Haematochezia [Unknown]
  - Malaise [Unknown]
  - Sleep disorder [Unknown]
  - Pruritus [Unknown]
  - Fatigue [Recovered/Resolved]
  - Dyspnoea [Recovered/Resolved]
  - Somnolence [Unknown]
  - Abdominal pain [Unknown]
  - Swelling [Unknown]
  - Back pain [Unknown]
  - Therapeutic response changed [Unknown]
  - Therapy interrupted [Unknown]
  - Intentional product use issue [Unknown]
